FAERS Safety Report 7213796-0 (Version None)
Quarter: 2011Q1

REPORT INFORMATION
  Report Type: 
  Country: None (occurrence: None)
  Receive Date: 20110106
  Receipt Date: 20101227
  Transmission Date: 20110831
  Serious: Yes (Hospitalization, Disabling, Other)
  Sender: FDA-Public Use
  Company Number: US-ELI_LILLY_AND_COMPANY-US201004001903

PATIENT
  Sex: Female

DRUGS (6)
  1. CHEMOTHERAPEUTICS NOS [Concomitant]
     Dates: start: 20070101
  2. METFORMIN HCL [Concomitant]
  3. HUMALOG [Suspect]
     Indication: TYPE 2 DIABETES MELLITUS
     Dosage: UNK, AS NEEDED
     Dates: start: 20070401
  4. LANTUS [Concomitant]
  5. HUMALOG [Suspect]
  6. HUMALOG [Suspect]
     Dosage: UNK, AS NEEDED
     Dates: start: 20070401

REACTIONS (6)
  - CROHN'S DISEASE [None]
  - BREAST CANCER RECURRENT [None]
  - BREAST CANCER STAGE IV [None]
  - IMPAIRED HEALING [None]
  - DRUG DOSE OMISSION [None]
  - MENISCUS LESION [None]
